FAERS Safety Report 24907291 (Version 2)
Quarter: 2025Q1

REPORT INFORMATION
  Report Type: Spontaneous
  Country: JP (occurrence: JP)
  Receive Date: 20250130
  Receipt Date: 20250221
  Transmission Date: 20250409
  Serious: Yes (Other)
  Sender: NOVARTIS
  Company Number: JP-002147023-NVSJ2025JP001319

PATIENT
  Age: 53 Year

DRUGS (5)
  1. KESIMPTA [Suspect]
     Active Substance: OFATUMUMAB
     Indication: Multiple sclerosis
     Dosage: 20 MG, 4W
     Route: 058
     Dates: start: 20241015, end: 20241015
  2. NATALIZUMAB [Suspect]
     Active Substance: NATALIZUMAB
     Indication: Multiple sclerosis
     Route: 065
     Dates: start: 20240430
  3. PREGABALIN [Concomitant]
     Active Substance: PREGABALIN
     Indication: Dysaesthesia
     Route: 065
  4. LIORESAL [Concomitant]
     Active Substance: BACLOFEN
     Indication: Paralysis
     Route: 065
  5. LACOSAMIDE [Concomitant]
     Active Substance: LACOSAMIDE
     Indication: Paralysis
     Route: 065
     Dates: start: 20240912

REACTIONS (1)
  - White blood cell count decreased [Not Recovered/Not Resolved]

NARRATIVE: CASE EVENT DATE: 20250107
